FAERS Safety Report 16413806 (Version 1)
Quarter: 2019Q2

REPORT INFORMATION
  Report Type: Spontaneous
  Country: US (occurrence: US)
  Receive Date: 20190611
  Receipt Date: 20190611
  Transmission Date: 20190711
  Serious: Yes (Hospitalization)
  Sender: FDA-Public Use
  Company Number: US-ENDO PHARMACEUTICALS INC-2019-105207

PATIENT
  Age: 6 Year
  Sex: Male

DRUGS (1)
  1. MEGACE ES [Suspect]
     Active Substance: MEGESTROL ACETATE
     Indication: APPETITE DISORDER
     Dosage: UNK UNKNOWN, UNKNOWN
     Route: 065

REACTIONS (3)
  - Intracranial pressure increased [Recovered/Resolved]
  - Intracranial hypotension [Recovered/Resolved]
  - Adrenal insufficiency [Recovered/Resolved]
